FAERS Safety Report 11673461 (Version 1)
Quarter: 2015Q4

REPORT INFORMATION
  Report Type: Spontaneous
  Country: US (occurrence: None)
  Receive Date: 20151027
  Receipt Date: 20151027
  Transmission Date: 20160304
  Serious: Yes (Disabling)
  Sender: FDA-Public Use
  Company Number: None

PATIENT
  Age: 67 Year
  Sex: Male
  Weight: 108.86 kg

DRUGS (2)
  1. LOSARTAN-HCTZ [Concomitant]
     Active Substance: HYDROCHLOROTHIAZIDE\LOSARTAN
  2. Z PACK (AZITHROMYCIN) [Suspect]
     Active Substance: AZITHROMYCIN DIHYDRATE
     Indication: BRONCHITIS
     Dosage: 4 PILLS; 1 PER DAY ONCE DAILY
     Route: 048
     Dates: start: 20150602, end: 20150605

REACTIONS (2)
  - Tendonitis [None]
  - Weight bearing difficulty [None]

NARRATIVE: CASE EVENT DATE: 20150604
